FAERS Safety Report 5429160-0 (Version None)
Quarter: 2007Q3

REPORT INFORMATION
  Report Type: 
  Country: None (occurrence: None)
  Receive Date: 20070829
  Receipt Date: 20070816
  Transmission Date: 20080115
  Serious: Yes (Death)
  Sender: FDA-Public Use
  Company Number: GB-ELI_LILLY_AND_COMPANY-GB200708003442

PATIENT
  Age: 55 Year
  Sex: Female

DRUGS (5)
  1. CYMBALTA [Suspect]
     Dosage: 30 MG, UNKNOWN
     Route: 065
  2. AMITRIPTYLINE HCL [Concomitant]
     Dosage: 20 MG, UNKNOWN
     Route: 065
  3. CLOPIXOL DEPOT [Concomitant]
     Dosage: UNK, UNKNOWN
     Route: 065
  4. DIAZEPAM [Concomitant]
     Dosage: UNK, UNKNOWN
     Route: 065
  5. ANADIN [Concomitant]
     Dosage: 6-8 A DAY
     Route: 065

REACTIONS (1)
  - DEATH [None]
